FAERS Safety Report 20071873 (Version 1)
Quarter: 2021Q4

REPORT INFORMATION
  Report Type: Report from Study
  Country: US (occurrence: US)
  Receive Date: 20211116
  Receipt Date: 20211116
  Transmission Date: 20220303
  Serious: No
  Sender: FDA-Public Use
  Company Number: US-INCYTE CORPORATION-2021IN010422

PATIENT

DRUGS (1)
  1. JAKAFI [Suspect]
     Active Substance: RUXOLITINIB
     Indication: Still^s disease
     Dosage: HALF OF A 2.5 MG TABLET OF JAKAFI TWICE DAILY WITH THE TABLET PREPARED IN A SUSPENSION
     Route: 048

REACTIONS (1)
  - Off label use [Unknown]
